FAERS Safety Report 7972688-X (Version None)
Quarter: 2011Q4

REPORT INFORMATION
  Report Type: 
  Country: None (occurrence: None)
  Receive Date: 20111209
  Receipt Date: 20111129
  Transmission Date: 20120403
  Serious: Yes (Other)
  Sender: FDA-Public Use
  Company Number: PNIS20110026

PATIENT
  Age: 57 Year
  Sex: Male

DRUGS (4)
  1. LERCANIDIPINE [Concomitant]
  2. MYCOPHENOLATE MOFETIL [Concomitant]
  3. PREDNISOLONE [Suspect]
     Indication: IMMUNOSUPPRESSION
     Dosage: 10 MG/DAY, ORAL
     Route: 048
  4. CYCLOSPORINE [Concomitant]

REACTIONS (1)
  - RETINAL PIGMENT EPITHELIOPATHY [None]
